FAERS Safety Report 6674121-7 (Version None)
Quarter: 2010Q2

REPORT INFORMATION
  Report Type: 
  Country: None (occurrence: None)
  Receive Date: 20100409
  Receipt Date: 20100406
  Transmission Date: 20101027
  Serious: Yes (Hospitalization)
  Sender: FDA-Public Use
  Company Number: US-BRISTOL-MYERS SQUIBB COMPANY-14893242

PATIENT
  Age: 65 Year
  Sex: Female
  Weight: 77 kg

DRUGS (19)
  1. ETOPOSIDE [Suspect]
     Indication: SMALL CELL LUNG CANCER STAGE UNSPECIFIED
     Dosage: DAY 1-3 29OCT09-03NOV09,(5DAYS) 08JAN10
     Route: 042
     Dates: start: 20091029
  2. CISPLATIN [Suspect]
     Indication: SMALL CELL LUNG CANCER STAGE UNSPECIFIED
     Dosage: 08JAN10
     Route: 042
     Dates: start: 20091029
  3. LORAZEPAM [Concomitant]
     Indication: PROPHYLAXIS OF NAUSEA AND VOMITING
     Dosage: 0.5-1 MG(AS REQUIRED);19NOV09-19NOV09(2MG)(1MG,2 IN 1 D)
     Route: 048
     Dates: start: 20091102
  4. PROCHLORPERAZINE EDISYLATE [Concomitant]
     Indication: PROPHYLAXIS OF NAUSEA AND VOMITING
     Dosage: DOSING FREQUENCY=Q6H PRN
     Route: 048
     Dates: start: 20091102
  5. HYDROCHLOROTHIAZIDE [Concomitant]
     Indication: HYPERTENSION
     Dates: start: 19980101, end: 20091107
  6. METOPROLOL TARTRATE [Concomitant]
     Indication: HYPERTENSION
     Dates: start: 20070101, end: 20091107
  7. ONDANSETRON [Concomitant]
     Indication: PROPHYLAXIS OF NAUSEA AND VOMITING
     Dosage: THERAPY DUR AND DOSE VALUE=2OCT09 AT 8MG,29OCT=12MG,30OCT=12MG,31OCT=16MG.30-30SEP09;20-20NOV09
     Route: 048
     Dates: start: 20091002
  8. EZETIMIBE [Concomitant]
     Indication: HYPERLIPIDAEMIA
     Route: 048
     Dates: start: 20070101, end: 20091105
  9. OMEPRAZOLE [Concomitant]
     Indication: GASTROOESOPHAGEAL REFLUX DISEASE
     Dates: start: 20091016
  10. DEXAMETHASONE [Concomitant]
     Indication: PROPHYLAXIS OF NAUSEA AND VOMITING
     Dates: start: 20091029, end: 20091029
  11. APREPITANT [Concomitant]
     Indication: PROPHYLAXIS OF NAUSEA AND VOMITING
     Dosage: THERAPY DATE=30,31OCT09 AT 80MG,29OCT AT 125MG.
     Dates: start: 20091029, end: 20091031
  12. ALENDRONATE SODIUM [Concomitant]
     Indication: OSTEOPOROSIS
     Dates: start: 19980101, end: 20091105
  13. MANNITOL [Concomitant]
     Dates: start: 20091029, end: 20091029
  14. SODIUM CHLORIDE [Concomitant]
     Indication: FLUID REPLACEMENT
     Dates: start: 20091029, end: 20091029
  15. POTASSIUM CHLORIDE [Concomitant]
     Indication: PROPHYLAXIS
     Dosage: 29,30 OCT=20MILLIEQUI.31OCT=40MILLIEQUI.
     Dates: start: 20091029, end: 20091031
  16. MAGNESIUM SULFATE [Concomitant]
     Indication: PROPHYLAXIS
     Dates: start: 20091029, end: 20091029
  17. CETIRIZINE HCL [Concomitant]
     Indication: SEASONAL ALLERGY
     Dates: start: 20090901
  18. SIMETICONE [Concomitant]
     Indication: ABDOMINAL DISTENSION
     Dates: start: 20091019, end: 20091019
  19. METOPROLOL SUCCINATE [Concomitant]
     Indication: HYPERTENSION
     Dosage: 29SEP2009-07NOV2009(39D);09NOV2009
     Dates: start: 20090929

REACTIONS (6)
  - ABDOMINAL PAIN [None]
  - ANAEMIA [None]
  - FEBRILE NEUTROPENIA [None]
  - HYPOKALAEMIA [None]
  - NAUSEA [None]
  - VOMITING [None]
